FAERS Safety Report 7731499 (Version 2)
Quarter: 2013Q2

REPORT INFORMATION
  Report Type: Spontaneous
  Country: US (occurrence: US)
  Receive Date: 20101222
  Receipt Date: 20130506
  Transmission Date: 20140414
  Serious: No
  Sender: FDA-Public Use
  Company Number: US-AMGEN-KDL424664

PATIENT
  Age: 23 Year
  Sex: Male

DRUGS (1)
  1. ENBREL [Suspect]
     Indication: PSORIASIS
     Dosage: 50 MG, QWK
     Route: 058
     Dates: start: 20090101, end: 2010

REACTIONS (3)
  - Injection site anaesthesia [Recovered/Resolved]
  - Psoriasis [Not Recovered/Not Resolved]
  - Tooth infection [Not Recovered/Not Resolved]
